FAERS Safety Report 7232343-0 (Version None)
Quarter: 2011Q1

REPORT INFORMATION
  Report Type: 
  Country: None (occurrence: None)
  Receive Date: 20110106
  Receipt Date: 20101230
  Transmission Date: 20110831
  Serious: Yes (Hospitalization, Other)
  Sender: FDA-Public Use
  Company Number: CL-280-2011

PATIENT
  Age: 4 Year
  Sex: Male

DRUGS (1)
  1. ONDANSETRON [Suspect]
     Dosage: 2MG ONCE INTRAVENOUS; (ONSE DOSE)
     Route: 042

REACTIONS (3)
  - DYSTONIA [None]
  - GRAND MAL CONVULSION [None]
  - HYPOGLYCAEMIA [None]
